FAERS Safety Report 8250388-9 (Version None)
Quarter: 2012Q1

REPORT INFORMATION
  Report Type: 
  Country: None (occurrence: None)
  Receive Date: 20120328
  Receipt Date: 20120319
  Transmission Date: 20120608
  Serious: Yes (Other)
  Sender: FDA-Public Use
  Company Number: 2012-026892

PATIENT
  Age: 65 Year
  Sex: Female
  Weight: 85 kg

DRUGS (8)
  1. ASPIRIN [Suspect]
     Indication: PRODUCT USED FOR UNKNOWN INDICATION
     Dosage: UNK
  2. PRAVASTATIN (PRAVASTATIN) ONGOING [Concomitant]
  3. WARFARIN (WARFARIN) ONGOING [Concomitant]
  4. PROTONIX [Suspect]
     Indication: HIATUS HERNIA
     Dosage: DAILY DOSE 40 MG
  5. PROTONIX [Suspect]
     Indication: GASTROOESOPHAGEAL REFLUX DISEASE
     Dosage: DAILY DOSE 40 MG
  6. SYNTHROID (LEVOTHYROXINE SODIUM) ONGOING [Concomitant]
  7. PROCARDIA XL (NIFEDIPINE) ONGOING [Concomitant]
  8. DIOVAN (VALSARTAN) ONGOING [Concomitant]

REACTIONS (2)
  - GASTRIC HAEMORRHAGE [None]
  - CARDIAC OPERATION [None]
